FAERS Safety Report 23276789 (Version 1)
Quarter: 2023Q4

REPORT INFORMATION
  Report Type: Spontaneous
  Country: FR (occurrence: FR)
  Receive Date: 20231208
  Receipt Date: 20231208
  Transmission Date: 20240109
  Serious: Yes (Other)
  Sender: FDA-Public Use
  Company Number: FR-ELI_LILLY_AND_COMPANY-FR202311016747

PATIENT
  Age: 17 Year
  Sex: Male
  Weight: 56 kg

DRUGS (3)
  1. PROZAC [Suspect]
     Active Substance: FLUOXETINE HYDROCHLORIDE
     Indication: Depression
     Dosage: 10 MG, UNKNOWN
     Route: 048
     Dates: start: 20221011, end: 20221017
  2. PROZAC [Suspect]
     Active Substance: FLUOXETINE HYDROCHLORIDE
     Indication: Anxiety
     Dosage: 20 MG, UNKNOWN
     Route: 048
     Dates: start: 20221018, end: 20221109
  3. PROZAC [Suspect]
     Active Substance: FLUOXETINE HYDROCHLORIDE
     Dosage: 30 MG, UNKNOWN
     Route: 048
     Dates: start: 20221110, end: 20221215

REACTIONS (3)
  - Erection increased [Recovered/Resolved]
  - Libido increased [Recovered/Resolved]
  - Orgasm abnormal [Recovered/Resolved]

NARRATIVE: CASE EVENT DATE: 20221022
